FAERS Safety Report 4634219-1 (Version None)
Quarter: 2005Q2

REPORT INFORMATION
  Report Type: 
  Country: None (occurrence: None)
  Receive Date: 20050413
  Receipt Date: 20050404
  Transmission Date: 20051028
  Serious: Yes (Hospitalization)
  Sender: FDA-Public Use
  Company Number: FR-SANOFI-SYNTHELABO-A02200500941

PATIENT
  Age: 70 Year
  Sex: Female

DRUGS (8)
  1. PLAVIX [Suspect]
     Indication: DRUG USE FOR UNKNOWN INDICATION
     Route: 048
  2. IKOREL [Suspect]
     Indication: DRUG USE FOR UNKNOWN INDICATION
     Dosage: 20 MG
     Route: 048
  3. ZYLORIC [Suspect]
     Indication: DRUG USE FOR UNKNOWN INDICATION
     Dosage: UNK
     Route: 048
     Dates: start: 20041220, end: 20050112
  4. ELISOR [Suspect]
     Indication: DRUG USE FOR UNKNOWN INDICATION
     Dosage: 40 MG
     Route: 048
     Dates: start: 20041220, end: 20050119
  5. SOPROL [Suspect]
     Indication: DRUG USE FOR UNKNOWN INDICATION
     Route: 048
  6. PRAXILENE [Suspect]
     Indication: DRUG USE FOR UNKNOWN INDICATION
     Dosage: 600 MG
     Route: 048
     Dates: end: 20050119
  7. AMLOR [Concomitant]
     Indication: DRUG USE FOR UNKNOWN INDICATION
     Route: 048
  8. INSULATARD [Concomitant]
     Indication: DRUG USE FOR UNKNOWN INDICATION
     Route: 058

REACTIONS (3)
  - DIABETES MELLITUS INSULIN-DEPENDENT [None]
  - RENAL FAILURE [None]
  - STEVENS-JOHNSON SYNDROME [None]
